FAERS Safety Report 25135694 (Version 1)
Quarter: 2025Q1

REPORT INFORMATION
  Report Type: Spontaneous
  Country: US (occurrence: US)
  Receive Date: 20250328
  Receipt Date: 20250328
  Transmission Date: 20250409
  Serious: Yes (Other)
  Sender: PFIZER
  Company Number: US-PFIZER INC-202400239992

PATIENT
  Age: 62 Year
  Sex: Female

DRUGS (8)
  1. TUKYSA [Suspect]
     Active Substance: TUCATINIB
     Indication: Breast cancer metastatic
     Dosage: TAKE TWO 150MG TABLETS TWICE DAILY
     Dates: start: 20210504
  2. CAPECITABINE [Concomitant]
     Active Substance: CAPECITABINE
     Dates: start: 20210504
  3. CAPECITABINE [Concomitant]
     Active Substance: CAPECITABINE
     Dosage: 800MG BID
  4. CAPECITABINE [Concomitant]
     Active Substance: CAPECITABINE
     Dosage: 650 BID
  5. CAPECITABINE [Concomitant]
     Active Substance: CAPECITABINE
     Dates: start: 20220628
  6. CAPECITABINE [Concomitant]
     Active Substance: CAPECITABINE
     Dates: start: 20220920
  7. TRASTUZUMAB [Concomitant]
     Active Substance: TRASTUZUMAB
     Dates: start: 20210504
  8. TRASTUZUMAB [Concomitant]
     Active Substance: TRASTUZUMAB
     Dates: start: 20220628

REACTIONS (2)
  - Upper gastrointestinal haemorrhage [Unknown]
  - Normocytic anaemia [Recovered/Resolved]
